FAERS Safety Report 6912608-X (Version None)
Quarter: 2010Q3

REPORT INFORMATION
  Report Type: 
  Country: None (occurrence: None)
  Receive Date: 20100806
  Receipt Date: 20080808
  Transmission Date: 20110219
  Serious: No
  Sender: FDA-Public Use
  Company Number: US-PFIZER INC-2005086279

PATIENT
  Sex: Male
  Weight: 88.45 kg

DRUGS (16)
  1. DETROL LA [Suspect]
     Indication: HYPERTONIC BLADDER
     Route: 048
     Dates: start: 20050501
  2. DETROL LA [Suspect]
     Indication: PROSTATOMEGALY
  3. PLAVIX [Concomitant]
     Route: 048
  4. ACETYLSALICYLIC ACID SRT [Concomitant]
     Route: 048
  5. AVANDIA [Concomitant]
     Route: 048
  6. TOPROL-XL [Concomitant]
     Route: 048
  7. LISINOPRIL [Concomitant]
     Route: 048
  8. LIPITOR [Concomitant]
     Route: 048
  9. LUMIGAN [Concomitant]
     Route: 047
  10. TIMOLOL MALEATE [Concomitant]
     Route: 047
  11. DIAZEPAM [Concomitant]
     Route: 048
  12. NITROGLYCERIN [Concomitant]
     Route: 060
  13. VITAMIN TAB [Concomitant]
     Route: 048
  14. ALL OTHER THERAPEUTIC PRODUCTS [Concomitant]
  15. ACTOS [Concomitant]
  16. NYSTATIN [Concomitant]

REACTIONS (3)
  - DRUG EFFECT DECREASED [None]
  - NOCTURIA [None]
  - POLLAKIURIA [None]
